FAERS Safety Report 22204291 (Version 1)
Quarter: 2023Q2

REPORT INFORMATION
  Report Type: Spontaneous
  Country: BR (occurrence: BR)
  Receive Date: 20230412
  Receipt Date: 20230412
  Transmission Date: 20230722
  Serious: Yes (Other)
  Sender: FDA-Public Use
  Company Number: BR-BRISTOL-MYERS SQUIBB COMPANY-2023-050181

PATIENT
  Age: 72 Year
  Sex: Male
  Weight: 76.8 kg

DRUGS (1)
  1. OPDIVO [Suspect]
     Active Substance: NIVOLUMAB
     Indication: Lip and/or oral cavity cancer
     Dosage: DOSE : 240 MG;     FREQ : 1 D15; 1 D1; 28 DAYS BREAK
     Dates: start: 20230311

REACTIONS (4)
  - Erythema [Recovering/Resolving]
  - Hypoxia [Recovering/Resolving]
  - Tremor [Recovering/Resolving]
  - Off label use [Unknown]

NARRATIVE: CASE EVENT DATE: 20230311
